FAERS Safety Report 6318225-7 (Version None)
Quarter: 2009Q3

REPORT INFORMATION
  Report Type: 
  Country: None (occurrence: None)
  Receive Date: 20090820
  Receipt Date: 20090820
  Transmission Date: 20100115
  Serious: Yes (Death, Hospitalization)
  Sender: FDA-Public Use
  Company Number: None

PATIENT
  Sex: Male

DRUGS (8)
  1. REVLIMID [Suspect]
     Indication: MULTIPLE MYELOMA
     Dosage: REVLIMID 25MG DAILY X 21 DAYS ORAL
     Route: 048
     Dates: start: 20070809, end: 20080701
  2. DEXAMETHASONE [Concomitant]
  3. CEFPODOXIME PROXETIL [Concomitant]
  4. WARFARIN [Concomitant]
  5. FAMOTIDINE [Concomitant]
  6. ZOMETA [Concomitant]
  7. TEMAZEPAM [Concomitant]
  8. VICODIN [Concomitant]

REACTIONS (3)
  - COGNITIVE DISORDER [None]
  - MALIGNANT NEOPLASM PROGRESSION [None]
  - MULTIPLE MYELOMA [None]
